FAERS Safety Report 23710425 (Version 2)
Quarter: 2024Q2

REPORT INFORMATION
  Report Type: Spontaneous
  Country: PK (occurrence: PK)
  Receive Date: 20240405
  Receipt Date: 20240411
  Transmission Date: 20240717
  Serious: No
  Sender: FDA-Public Use
  Company Number: PK-PFIZER INC-PV202300127244

PATIENT
  Age: 22 Year
  Sex: Male

DRUGS (4)
  1. ENBREL [Suspect]
     Active Substance: ETANERCEPT
     Indication: Ankylosing spondylitis
     Dosage: 1 INJ/WEEK
     Route: 065
     Dates: start: 202206
  2. ENBREL [Suspect]
     Active Substance: ETANERCEPT
     Dosage: 50 MG, WEEKLY
     Route: 058
  3. ENBREL [Suspect]
     Active Substance: ETANERCEPT
     Dosage: 50 MG AFTER EVERY 10 DAYS
     Route: 058
  4. SILLIVER [Concomitant]
     Dosage: AFTER MEAL DAILY
     Route: 065

REACTIONS (6)
  - Alanine aminotransferase increased [Unknown]
  - Aspartate aminotransferase increased [Unknown]
  - Treatment noncompliance [Unknown]
  - Red blood cell sedimentation rate increased [Unknown]
  - Pain [Unknown]
  - Off label use [Unknown]

NARRATIVE: CASE EVENT DATE: 20230206
